FAERS Safety Report 8266055-1 (Version None)
Quarter: 2012Q2

REPORT INFORMATION
  Report Type: 
  Country: None (occurrence: None)
  Receive Date: 20120406
  Receipt Date: 20120326
  Transmission Date: 20120825
  Serious: Yes (Other)
  Sender: FDA-Public Use
  Company Number: IT-BRISTOL-MYERS SQUIBB COMPANY-16479024

PATIENT
  Age: 13 Year
  Sex: Female

DRUGS (2)
  1. ETOPOSIDE [Suspect]
     Indication: NEUROBLASTOMA
  2. CARBOPLATIN [Suspect]
     Indication: NEUROBLASTOMA

REACTIONS (1)
  - BARRETT'S OESOPHAGUS [None]
